FAERS Safety Report 22268745 (Version 1)
Quarter: 2023Q2

REPORT INFORMATION
  Report Type: Other
  Country: GB (occurrence: None)
  Receive Date: 20230501
  Receipt Date: 20230501
  Transmission Date: 20230721
  Serious: Yes (Hospitalization)
  Sender: FDA-Public Use
  Company Number: GB-ROCHE-3247287

PATIENT
  Age: 86 Year
  Sex: Male

DRUGS (2)
  1. ESBRIET [Suspect]
     Active Substance: PIRFENIDONE
     Indication: Product used for unknown indication
     Route: 065
     Dates: start: 20220517
  2. ESBRIET [Suspect]
     Active Substance: PIRFENIDONE
     Route: 065
     Dates: start: 202205

REACTIONS (5)
  - Malaise [Unknown]
  - COVID-19 [Unknown]
  - Asthma [Unknown]
  - Plasma cell myeloma [Unknown]
  - Urinary tract infection [Unknown]
